FAERS Safety Report 18915953 (Version 1)
Quarter: 2021Q1

REPORT INFORMATION
  Report Type: Report from Study
  Country: US (occurrence: US)
  Receive Date: 20210219
  Receipt Date: 20210219
  Transmission Date: 20210420
  Serious: Yes (Death)
  Sender: FDA-Public Use
  Company Number: US-ASTRAZENECA-2021A061159

PATIENT

DRUGS (1)
  1. BREZTRI AEROSPHERE [Suspect]
     Active Substance: BUDESONIDE\FORMOTEROL\GLYCOPYRRONIUM
     Dosage: 160 MCG?9 MCG?4.8 MCG 2 PUFFS TWO TIMES A DAY
     Route: 055

REACTIONS (1)
  - Death [Fatal]
